FAERS Safety Report 6845998-7 (Version None)
Quarter: 2010Q3

REPORT INFORMATION
  Report Type: 
  Country: None (occurrence: None)
  Receive Date: 20100715
  Receipt Date: 20070904
  Transmission Date: 20110219
  Serious: No
  Sender: FDA-Public Use
  Company Number: US-PFIZER INC-2007074650

PATIENT
  Sex: Male
  Weight: 78.2 kg

DRUGS (6)
  1. CHANTIX [Suspect]
     Indication: SMOKING CESSATION THERAPY
     Dates: start: 20070801, end: 20070830
  2. ZOLOFT [Concomitant]
  3. ZOCOR [Concomitant]
  4. TRICOR [Concomitant]
  5. OMACOR [Concomitant]
  6. ACETYLSALICYLIC ACID [Concomitant]

REACTIONS (2)
  - ABNORMAL FAECES [None]
  - CONSTIPATION [None]
